FAERS Safety Report 22230726 (Version 1)
Quarter: 2023Q2

REPORT INFORMATION
  Report Type: Report from Study
  Country: PR (occurrence: PR)
  Receive Date: 20230420
  Receipt Date: 20230420
  Transmission Date: 20230721
  Serious: Yes (Other)
  Sender: FDA-Public Use
  Company Number: PR-ABBVIE-4734460

PATIENT
  Sex: Male
  Weight: 98 kg

DRUGS (11)
  1. HUMIRA [Suspect]
     Active Substance: ADALIMUMAB
     Indication: Psoriasis
     Route: 058
     Dates: start: 2013
  2. GLIMEPIRIDE [Concomitant]
     Active Substance: GLIMEPIRIDE
     Indication: Diabetes mellitus
     Dosage: FORM STRENGTH: 2 MILLIGRAM
     Route: 048
  3. PEPCID [Concomitant]
     Active Substance: FAMOTIDINE
     Indication: Abdominal discomfort
     Dosage: FORM STRENGTH: 40 MILLIGRAM
     Route: 048
  4. PLAVIX [Concomitant]
     Active Substance: CLOPIDOGREL BISULFATE
     Indication: Cardiac disorder
     Dosage: FORM STRENGTH: 75 MILLIGRAM
     Route: 048
  5. ENALAPRIL [Concomitant]
     Active Substance: ENALAPRIL
     Indication: Hypertension
     Dosage: FORM STRENGTH: 5 MILLIGRAM
     Route: 048
  6. ELASOMERAN [Concomitant]
     Active Substance: ELASOMERAN
     Indication: COVID-19 immunisation
     Dosage: 2ND DOSE?FREQUENCY: ONCE
     Route: 030
  7. ELASOMERAN [Concomitant]
     Active Substance: ELASOMERAN
     Indication: COVID-19 immunisation
     Dosage: 3RD DOSE?FREQUENCY: ONCE
     Route: 030
  8. ELASOMERAN [Concomitant]
     Active Substance: ELASOMERAN
     Indication: COVID-19 immunisation
     Dosage: 1ST DOSE?FREQUENCY: ONCE
     Route: 030
  9. Sitagliptin / Metformin (Janumet) [Concomitant]
     Indication: Diabetes mellitus
     Dosage: 50MG/1000MG
     Route: 048
  10. GALANTAMINE [Concomitant]
     Active Substance: GALANTAMINE
     Indication: Memory impairment
     Dosage: FORM STRENGTH: 8 MILLIGRAM
     Route: 048
  11. ATORVASTATIN [Concomitant]
     Active Substance: ATORVASTATIN
     Indication: Blood cholesterol abnormal
     Dosage: FORM STRENGTH: 40 MILLIGRAM
     Route: 048

REACTIONS (3)
  - Sleep apnoea syndrome [Recovering/Resolving]
  - Psoriasis [Recovering/Resolving]
  - Coronary angioplasty [Recovered/Resolved]

NARRATIVE: CASE EVENT DATE: 20220101
